FAERS Safety Report 8774170 (Version 6)
Quarter: 2013Q3

REPORT INFORMATION
  Report Type: Spontaneous
  Country: US (occurrence: US)
  Receive Date: 20120907
  Receipt Date: 20130703
  Transmission Date: 20140515
  Serious: Yes (Hospitalization, Disabling, Other)
  Sender: FDA-Public Use
  Company Number: US-MERCK-1208USA011473

PATIENT
  Sex: Female
  Weight: 79.37 kg

DRUGS (8)
  1. FOSAMAX [Suspect]
     Indication: PROPHYLAXIS
     Dosage: 70 MG, QW
     Route: 048
     Dates: end: 200607
  2. FOSAMAX [Suspect]
     Dosage: UNK
     Route: 048
     Dates: start: 200702, end: 2011
  3. FOSAMAX [Suspect]
     Dosage: UNK
     Route: 048
     Dates: start: 1995
  4. BONIVA [Suspect]
     Indication: PROPHYLAXIS
     Dosage: 150 MG, QD
     Route: 048
     Dates: start: 200607, end: 200702
  5. ALENDRONATE SODIUM [Suspect]
     Indication: PROPHYLAXIS
     Dosage: 70 MG, QW
     Route: 048
     Dates: start: 200706, end: 201011
  6. SERTRALINE HYDROCHLORIDE [Concomitant]
     Indication: PRODUCT USED FOR UNKNOWN INDICATION
     Dosage: 100 MG, UNK
     Dates: start: 1995
  7. AMLODIPINE [Concomitant]
     Indication: HYPERTENSION
     Dosage: 5 MG, QD
     Dates: start: 2004
  8. METOPROLOL [Concomitant]
     Indication: HYPERTENSION
     Dosage: 100 MG, UNK

REACTIONS (21)
  - Hip arthroplasty [Unknown]
  - Low turnover osteopathy [Not Recovered/Not Resolved]
  - Knee arthroplasty [Unknown]
  - Knee arthroplasty [Unknown]
  - Lung operation [Unknown]
  - Cholecystectomy [Unknown]
  - Open reduction of fracture [Unknown]
  - Post procedural infection [Unknown]
  - Femur fracture [Recovered/Resolved]
  - Osteoporosis [Unknown]
  - Osteoarthritis [Unknown]
  - Arthritis [Unknown]
  - Pneumothorax [Unknown]
  - Hysterectomy [Unknown]
  - Cystopexy [Unknown]
  - Polypectomy [Unknown]
  - Visual acuity reduced [Unknown]
  - Cellulitis [Unknown]
  - Cellulitis [Unknown]
  - Anaemia [Unknown]
  - Arthralgia [Unknown]
